FAERS Safety Report 6759404-4 (Version None)
Quarter: 2010Q2

REPORT INFORMATION
  Report Type: 
  Country: None (occurrence: None)
  Receive Date: 20100607
  Receipt Date: 20100525
  Transmission Date: 20101027
  Serious: Yes (Hospitalization)
  Sender: FDA-Public Use
  Company Number: US-ELI_LILLY_AND_COMPANY-US201005006969

PATIENT
  Sex: Male

DRUGS (5)
  1. FORTEO [Suspect]
     Indication: OSTEOPOROSIS
     Dosage: 20 UG, DAILY (1/D)
     Dates: start: 20091031
  2. DILANTIN [Concomitant]
     Dosage: 100 MG, EACH MORNING
  3. DILANTIN [Concomitant]
     Dosage: 200 MG, EACH EVENING
  4. PHENOBARBITAL [Concomitant]
     Dosage: 60 MG, 2/D
  5. LEXAPRO [Concomitant]
     Dosage: 20 MG, EACH EVENING

REACTIONS (5)
  - DECUBITUS ULCER [None]
  - FALL [None]
  - FEMUR FRACTURE [None]
  - SKIN DISORDER [None]
  - SKIN INJURY [None]
